FAERS Safety Report 16943167 (Version 2)
Quarter: 2019Q4

REPORT INFORMATION
  Report Type: Spontaneous
  Country: BR (occurrence: BR)
  Receive Date: 20191021
  Receipt Date: 20191125
  Transmission Date: 20200122
  Serious: Yes (Death, Hospitalization)
  Sender: FDA-Public Use
  Company Number: BR-BEH-2019108396

PATIENT
  Age: 63 Year
  Sex: Male

DRUGS (1)
  1. HIZENTRA [Suspect]
     Active Substance: HUMAN IMMUNOGLOBULIN G
     Indication: CHRONIC INFLAMMATORY DEMYELINATING POLYRADICULONEUROPATHY
     Dosage: 90 GRAM, QW
     Route: 058

REACTIONS (4)
  - Respiratory failure [Fatal]
  - Immunoglobulins decreased [Fatal]
  - Infection [Fatal]
  - Diaphragmatic paralysis [Fatal]
